FAERS Safety Report 7883795-4 (Version None)
Quarter: 2011Q4

REPORT INFORMATION
  Report Type: 
  Country: None (occurrence: None)
  Receive Date: 20111102
  Receipt Date: 20101013
  Transmission Date: 20120403
  Serious: No
  Sender: FDA-Public Use
  Company Number: US-PFIZER INC-US-WYE-H18163010

PATIENT
  Sex: Male

DRUGS (1)
  1. ZOSYN [Suspect]
     Dosage: UNKNOWN
     Route: 042

REACTIONS (1)
  - CRYSTAL URINE [None]
